FAERS Safety Report 7783162-8 (Version None)
Quarter: 2011Q3

REPORT INFORMATION
  Report Type: 
  Country: None (occurrence: None)
  Receive Date: 20110928
  Receipt Date: 20110916
  Transmission Date: 20111222
  Serious: Yes (Hospitalization, Other)
  Sender: FDA-Public Use
  Company Number: US-BRISTOL-MYERS SQUIBB COMPANY-16092603

PATIENT
  Age: 67 Year
  Sex: Male

DRUGS (4)
  1. HYDROCORTISONE VALERATE [Suspect]
     Indication: STEROID THERAPY
     Dosage: HYDROVAL CREAM
     Route: 061
     Dates: start: 20070901
  2. LEVAQUIN [Suspect]
     Indication: INFECTION
     Dosage: 500MG;2003-UK,07DEC04-UK,29OT05-UK,13MY06-UK,11SP07-UK,250MG;QD;11FB05-UK,11SP07-UK
     Route: 048
     Dates: start: 20030101
  3. TRIAMCINOLONE [Suspect]
     Indication: STEROID THERAPY
     Route: 065
     Dates: start: 20060901
  4. LEVAQUIN [Suspect]
     Indication: BACTERIAL INFECTION
     Dosage: 500MG;2003-UK,07DEC04-UK,29OT05-UK,13MY06-UK,11SP07-UK,250MG;QD;11FB05-UK,11SP07-UK
     Route: 048
     Dates: start: 20030101

REACTIONS (1)
  - TENDON RUPTURE [None]
